FAERS Safety Report 17909653 (Version 3)
Quarter: 2020Q3

REPORT INFORMATION
  Report Type: Spontaneous
  Country: US (occurrence: US)
  Receive Date: 20200617
  Receipt Date: 20200818
  Transmission Date: 20201103
  Serious: Yes (Other)
  Sender: FDA-Public Use
  Company Number: US-NAPPMUNDI-USA-2020-0152615

PATIENT
  Age: 49 Year
  Sex: Male

DRUGS (4)
  1. OXYCONTIN [Suspect]
     Active Substance: OXYCODONE HYDROCHLORIDE
     Indication: PAIN
     Dosage: 30 MG, BID
     Route: 048
     Dates: start: 1999
  2. MORPHINE SULFATE (SIMILAR TO NDA 19?516) [Suspect]
     Active Substance: MORPHINE SULFATE
     Indication: PAIN
     Dosage: 60 MG, BID
     Route: 048
     Dates: start: 1999
  3. PERCOCET                           /00446701/ [Suspect]
     Active Substance: ACETAMINOPHEN\OXYCODONE HYDROCHLORIDE\OXYCODONE TEREPHTHALATE
     Indication: PAIN
     Dosage: 10/325 MG
     Route: 048
     Dates: start: 1999
  4. MORPHINE SULFATE (SIMILAR TO NDA 19?516) [Suspect]
     Active Substance: MORPHINE SULFATE
     Dosage: 30 UNK, UNK
     Route: 048

REACTIONS (21)
  - Muscle tightness [Not Recovered/Not Resolved]
  - Hypokinesia [Unknown]
  - Vomiting [Unknown]
  - Tension [Not Recovered/Not Resolved]
  - Drug ineffective [Unknown]
  - Thrombosis [Unknown]
  - Stress [Unknown]
  - Gait disturbance [Unknown]
  - Asthenia [Unknown]
  - Eating disorder [Not Recovered/Not Resolved]
  - Coronary artery disease [Unknown]
  - Myocardial infarction [Unknown]
  - Stent placement [Unknown]
  - Drug abuse [Unknown]
  - Unevaluable event [Unknown]
  - Loss of consciousness [Unknown]
  - Substance use [Not Recovered/Not Resolved]
  - Near death experience [Unknown]
  - Pain [Unknown]
  - Flatulence [Not Recovered/Not Resolved]
  - Emotional distress [Unknown]

NARRATIVE: CASE EVENT DATE: 20031211
